FAERS Safety Report 6158339-8 (Version None)
Quarter: 2009Q2

REPORT INFORMATION
  Report Type: 
  Country: None (occurrence: None)
  Receive Date: 20090417
  Receipt Date: 20090407
  Transmission Date: 20091009
  Serious: Yes (Hospitalization, Other)
  Sender: FDA-Public Use
  Company Number: US-BIOGENIDEC-2009BI010937

PATIENT
  Age: 38 Year
  Sex: Male

DRUGS (8)
  1. TYSABRI [Suspect]
     Indication: MULTIPLE SCLEROSIS
     Route: 042
     Dates: start: 20080624
  2. NAPROSYN [Concomitant]
     Indication: PAIN
     Route: 048
  3. FLEXERIL [Concomitant]
     Indication: MUSCLE SPASTICITY
     Route: 048
  4. OXYTROL [Concomitant]
     Indication: POLLAKIURIA
     Route: 062
  5. PREVACID [Concomitant]
     Indication: GASTROOESOPHAGEAL REFLUX DISEASE
     Route: 048
  6. BONIVA [Concomitant]
     Indication: OSTEOPOROSIS
     Route: 048
  7. ZANAFLEX [Concomitant]
     Indication: MUSCLE SPASTICITY
     Route: 048
  8. AMBIEN [Concomitant]
     Indication: INSOMNIA
     Route: 048

REACTIONS (1)
  - PNEUMOTHORAX [None]
